FAERS Safety Report 22335727 (Version 2)
Quarter: 2023Q2

REPORT INFORMATION
  Report Type: Report from Study
  Country: CO (occurrence: CO)
  Receive Date: 20230518
  Receipt Date: 20230607
  Transmission Date: 20230722
  Serious: Yes (Hospitalization, Other)
  Sender: FDA-Public Use
  Company Number: CO-ABBVIE-4766271

PATIENT
  Sex: Male
  Weight: 51 kg

DRUGS (2)
  1. ZEMPLAR [Suspect]
     Active Substance: PARICALCITOL
     Indication: Chronic kidney disease
     Dosage: FORM STRENGTH 5 MICROGRAM
     Route: 042
     Dates: start: 20201023, end: 20230224
  2. WARFARIN [Concomitant]
     Active Substance: WARFARIN
     Indication: Thrombosis

REACTIONS (11)
  - Fistula [Recovered/Resolved]
  - Device toxicity [Not Recovered/Not Resolved]
  - Device issue [Recovering/Resolving]
  - Nausea [Not Recovered/Not Resolved]
  - Bacterial infection [Recovered/Resolved]
  - Pyrexia [Recovered/Resolved]
  - Malaise [Not Recovered/Not Resolved]
  - Bacterial infection [Recovered/Resolved]
  - Hypotension [Unknown]
  - Loss of consciousness [Unknown]
  - Catheter placement [Unknown]

NARRATIVE: CASE EVENT DATE: 20210101
